FAERS Safety Report 23937276 (Version 1)
Quarter: 2024Q2

REPORT INFORMATION
  Report Type: Spontaneous
  Country: US (occurrence: None)
  Receive Date: 20240604
  Receipt Date: 20240604
  Transmission Date: 20240716
  Serious: Yes (Hospitalization)
  Sender: FDA-Public Use
  Company Number: None

PATIENT
  Sex: Male
  Weight: 72.3 kg

DRUGS (1)
  1. CISPLATIN [Suspect]
     Active Substance: CISPLATIN
     Dates: end: 20240508

REACTIONS (6)
  - Malnutrition [None]
  - Weight decreased [None]
  - COVID-19 [None]
  - Sepsis [None]
  - Complication associated with device [None]
  - Device intolerance [None]

NARRATIVE: CASE EVENT DATE: 20240521
